FAERS Safety Report 14929219 (Version 1)
Quarter: 2018Q2

REPORT INFORMATION
  Report Type: Spontaneous
  Country: US (occurrence: US)
  Receive Date: 20180523
  Receipt Date: 20180523
  Transmission Date: 20180711
  Serious: No
  Sender: FDA-Public Use
  Company Number: US-PFIZER INC-2018207417

PATIENT
  Sex: Female

DRUGS (1)
  1. EUCRISA [Suspect]
     Active Substance: CRISABOROLE
     Dosage: 60 G, UNK

REACTIONS (4)
  - Application site inflammation [Unknown]
  - Hypersensitivity [Unknown]
  - Application site haemorrhage [Unknown]
  - Application site erythema [Unknown]
